FAERS Safety Report 5413391-X (Version None)
Quarter: 2007Q3

REPORT INFORMATION
  Report Type: 
  Country: None (occurrence: None)
  Receive Date: 20070810
  Receipt Date: 20070720
  Transmission Date: 20080115
  Serious: Yes (Other)
  Sender: FDA-Public Use
  Company Number: 2007RR-08857

PATIENT
  Age: 40 Year
  Sex: Male

DRUGS (2)
  1. DOXYCYCLINE [Suspect]
     Dosage: 100 MG, QD, ORAL
     Route: 048
  2. METRONIDAZOLE [Suspect]
     Indication: RASH ERYTHEMATOUS
     Dosage: TOPICAL
     Route: 061

REACTIONS (1)
  - DRUG INEFFECTIVE [None]
